FAERS Safety Report 8984580 (Version 1)
Quarter: 2012Q4

REPORT INFORMATION
  Report Type: Spontaneous
  Country: JP (occurrence: None)
  Receive Date: 20121217
  Receipt Date: 20121217
  Transmission Date: 20130627
  Serious: Yes (Hospitalization, Other)
  Sender: FDA-Public Use
  Company Number: 2012-13053

PATIENT
  Age: 56 Year
  Sex: Female

DRUGS (1)
  1. GEMCITABINE (GEMCITABINE) [Suspect]
     Indication: PANCREATIC CARCINOMA RECURRENT

REACTIONS (17)
  - Pericardial effusion [None]
  - Pleural effusion [None]
  - Condition aggravated [None]
  - Nausea [None]
  - Fatigue [None]
  - Face oedema [None]
  - Oedema peripheral [None]
  - Blood pressure systolic increased [None]
  - Anaemia [None]
  - Body temperature increased [None]
  - Performance status decreased [None]
  - Proteinuria [None]
  - Haematuria [None]
  - Rheumatoid factor positive [None]
  - Ejection fraction decreased [None]
  - Metastases to liver [None]
  - Hepatic failure [None]
